FAERS Safety Report 8134956-0 (Version None)
Quarter: 2012Q1

REPORT INFORMATION
  Report Type: 
  Country: None (occurrence: None)
  Receive Date: 20120214
  Receipt Date: 20120201
  Transmission Date: 20120608
  Serious: Yes (Other)
  Sender: FDA-Public Use
  Company Number: AU-UCBSA-029272

PATIENT
  Age: 74 Year
  Sex: Female

DRUGS (5)
  1. CIMZIA [Suspect]
     Indication: RHEUMATOID ARTHRITIS
     Route: 058
     Dates: start: 20110309, end: 20110601
  2. NEURONTIN [Concomitant]
     Indication: RHEUMATOID ARTHRITIS
     Route: 048
  3. CARBIMAZOLE [Concomitant]
     Indication: HYPERTHYROIDISM
     Route: 048
  4. PREDNISOLONE [Concomitant]
     Indication: RHEUMATOID ARTHRITIS
     Route: 048
  5. XANAX [Concomitant]
     Indication: STRESS
     Route: 048

REACTIONS (5)
  - MUSCLE SPASMS [None]
  - NEUROPATHY PERIPHERAL [None]
  - DIZZINESS [None]
  - POLYURIA [None]
  - THIRST [None]
